FAERS Safety Report 11366738 (Version 1)
Quarter: 2015Q3

REPORT INFORMATION
  Report Type: Spontaneous
  Country: US (occurrence: US)
  Receive Date: 20150811
  Receipt Date: 20150811
  Transmission Date: 20151125
  Serious: No
  Sender: FDA-Public Use
  Company Number: US-ELI_LILLY_AND_COMPANY-US201305003840

PATIENT
  Age: 34 Year
  Sex: Female

DRUGS (3)
  1. PROTONIX [Concomitant]
     Active Substance: PANTOPRAZOLE SODIUM
  2. AXIRON [Suspect]
     Active Substance: TESTOSTERONE
  3. DULCOLAX [Concomitant]
     Active Substance: BISACODYL OR DOCUSATE SODIUM
     Indication: CONSTIPATION

REACTIONS (20)
  - Accidental exposure to product [Unknown]
  - Mydriasis [Unknown]
  - Oedema genital [Unknown]
  - Genital discomfort [Unknown]
  - Acne [Unknown]
  - Mood altered [Unknown]
  - Breast atrophy [Unknown]
  - Feeling hot [Unknown]
  - Palpitations [Unknown]
  - Abdominal pain [Unknown]
  - Anger [Unknown]
  - Energy increased [Unknown]
  - Dyspnoea [Unknown]
  - Accidental overdose [Unknown]
  - Diarrhoea [Unknown]
  - Headache [Unknown]
  - Aggression [Unknown]
  - Peripheral swelling [Unknown]
  - Throat tightness [Unknown]
  - Dysphonia [Unknown]

NARRATIVE: CASE EVENT DATE: 201210
